FAERS Safety Report 23992736 (Version 1)
Quarter: 2024Q2

REPORT INFORMATION
  Report Type: Spontaneous
  Country: ES (occurrence: ES)
  Receive Date: 20240620
  Receipt Date: 20240620
  Transmission Date: 20240716
  Serious: Yes (Other)
  Sender: FDA-Public Use
  Company Number: None

PATIENT
  Age: 27 Year
  Sex: Female
  Weight: 70 kg

DRUGS (2)
  1. NASONEX [Suspect]
     Active Substance: MOMETASONE FUROATE
     Indication: Rhinitis
     Dosage: 50 MICROGRAM, Q12H, 2 SPRAYS 2 TIMES A DAY (MORNING AND NIGHT)
     Route: 045
     Dates: start: 20240228, end: 20240308
  2. RESPIBIEN [Concomitant]
     Dosage: (1 SPRAY CONTAINER OF 15 ML)
     Dates: start: 20240228, end: 20240611

REACTIONS (2)
  - Intraocular pressure increased [Recovering/Resolving]
  - Headache [Recovering/Resolving]

NARRATIVE: CASE EVENT DATE: 20240229
